FAERS Safety Report 7988138-3 (Version None)
Quarter: 2011Q4

REPORT INFORMATION
  Report Type: 
  Country: None (occurrence: None)
  Receive Date: 20111216
  Receipt Date: 20110616
  Transmission Date: 20120403
  Serious: No
  Sender: FDA-Public Use
  Company Number: US-BRISTOL-MYERS SQUIBB COMPANY-15839103

PATIENT
  Age: 15 Year
  Sex: Female

DRUGS (2)
  1. CLONIDINE [Concomitant]
     Dosage: AT BEDTIME
  2. ABILIFY [Suspect]
     Indication: SCHIZOAFFECTIVE DISORDER

REACTIONS (1)
  - BLOOD PROLACTIN INCREASED [None]
